FAERS Safety Report 9879666 (Version 1)
Quarter: 2014Q1

REPORT INFORMATION
  Report Type: Spontaneous
  Country: GB (occurrence: GB)
  Receive Date: 20140206
  Receipt Date: 20140206
  Transmission Date: 20141002
  Serious: Yes (Hospitalization, Other)
  Sender: FDA-Public Use
  Company Number: GB-WATSON-2014-01431

PATIENT
  Age: 47 Year
  Sex: Female

DRUGS (2)
  1. TRANEXAMIC ACID (UNKNOWN) [Suspect]
     Indication: MENORRHAGIA
     Dosage: 1 G, TID; FOR 3-4 DAYS DURING MENSTRUAL PERIOD
     Route: 065
  2. OMEPRAZOLE [Concomitant]
     Indication: GASTROOESOPHAGEAL REFLUX DISEASE
     Dosage: UNK
     Route: 065

REACTIONS (3)
  - Pulmonary embolism [Recovered/Resolved]
  - Fibrin D dimer decreased [Unknown]
  - False negative investigation result [Unknown]
